FAERS Safety Report 26088130 (Version 1)
Quarter: 2025Q4

REPORT INFORMATION
  Report Type: Report from Study
  Country: US (occurrence: US)
  Receive Date: 20251125
  Receipt Date: 20251125
  Transmission Date: 20260117
  Serious: Yes (Life-Threatening, Hospitalization, Other)
  Sender: ELI LILLY AND COMPANY
  Company Number: US-ELI_LILLY_AND_COMPANY-US202510024142

PATIENT
  Age: 75 Year
  Sex: Male

DRUGS (3)
  1. KISUNLA [Suspect]
     Active Substance: DONANEMAB-AZBT
     Indication: Product used for unknown indication
     Dosage: UNK, UNKNOWN (1ST INFUSION)
     Route: 065
     Dates: start: 20250716
  2. KISUNLA [Suspect]
     Active Substance: DONANEMAB-AZBT
     Dosage: UNK, UNKNOWN (2ND INFUSION)
     Route: 065
     Dates: start: 20250820
  3. KISUNLA [Suspect]
     Active Substance: DONANEMAB-AZBT
     Dosage: UNK UNK, UNKNOWN (3RD INFUSION)
     Route: 065
     Dates: start: 20251015

REACTIONS (7)
  - Atrial fibrillation [Unknown]
  - Biliary obstruction [Unknown]
  - Pancreatic carcinoma [Unknown]
  - Lymphoma [Unknown]
  - Medical device site erythema [Unknown]
  - Medical device site swelling [Unknown]
  - Device related infection [Unknown]
